FAERS Safety Report 4754148-2 (Version None)
Quarter: 2005Q3

REPORT INFORMATION
  Report Type: 
  Country: None (occurrence: None)
  Receive Date: 20050826
  Receipt Date: 20040312
  Transmission Date: 20060218
  Serious: Yes (Hospitalization)
  Sender: FDA-Public Use
  Company Number: JP-ABBOTT-05P-087-0306431-00

PATIENT
  Age: 1 Year
  Sex: Male
  Weight: 9 kg

DRUGS (7)
  1. ERYTHROCIN ORAL SUSPENSION [Suspect]
     Indication: PHARYNGITIS
     Route: 048
     Dates: start: 20040227, end: 20040312
  2. FOSFOMYCIN [Suspect]
     Indication: PHARYNGITIS
     Route: 042
     Dates: start: 20040308, end: 20040312
  3. TIPEPIDINE HIBENZATE [Concomitant]
     Indication: UPPER RESPIRATORY TRACT INFLAMMATION
     Route: 048
     Dates: start: 20040227, end: 20040312
  4. BROMHEXINE HYDROCHLORIDE [Concomitant]
     Indication: UPPER RESPIRATORY TRACT INFLAMMATION
     Route: 048
     Dates: start: 20040227, end: 20040312
  5. CYPROHEPTADINE HYDROCHLORIDE [Concomitant]
     Indication: UPPER RESPIRATORY TRACT INFLAMMATION
     Route: 048
     Dates: start: 20040227, end: 20040312
  6. CARBOCISTEINE LYSINE [Concomitant]
     Indication: UPPER RESPIRATORY TRACT INFLAMMATION
     Route: 048
     Dates: start: 20040227, end: 20040312
  7. TULOBUTEROL [Concomitant]
     Indication: PHARYNGITIS
     Route: 062
     Dates: start: 20040227, end: 20040312

REACTIONS (2)
  - PYREXIA [None]
  - RASH [None]
